FAERS Safety Report 4503081-X (Version None)
Quarter: 2004Q4

REPORT INFORMATION
  Report Type: 
  Country: None (occurrence: None)
  Receive Date: 20041112
  Receipt Date: 20041105
  Transmission Date: 20050328
  Serious: Yes (Hospitalization)
  Sender: FDA-Public Use
  Company Number: 6011302F

PATIENT
  Age: 53 Year
  Sex: Male

DRUGS (9)
  1. NIASPAN [Suspect]
     Indication: HYPERLIPIDAEMIA
     Dosage: 500 MG QD PO
     Route: 048
     Dates: start: 20040701
  2. FOLIC ACID [Suspect]
  3. METFORMIN [Concomitant]
  4. OMEGA-3 MARINE TRIGLYCERIDES [Concomitant]
  5. CLOPIDOGREL BISULFATE [Concomitant]
  6. ACETYLSALICYLIC ACID [Concomitant]
  7. VALSARTAN [Concomitant]
  8. TAMSULOSIN [Concomitant]
  9. CARVEDILOL [Concomitant]

REACTIONS (2)
  - BLOOD PRESSURE INCREASED [None]
  - CIRCULATORY COLLAPSE [None]
